FAERS Safety Report 6252041-X (Version None)
Quarter: 2009Q2

REPORT INFORMATION
  Report Type: 
  Country: None (occurrence: None)
  Receive Date: 20090630
  Receipt Date: 20070629
  Transmission Date: 20091009
  Serious: Yes (Hospitalization)
  Sender: FDA-Public Use
  Company Number: US-ROCHE-638589

PATIENT
  Sex: Male

DRUGS (18)
  1. ENFUVIRTIDE [Suspect]
     Indication: HIV INFECTION
     Route: 065
     Dates: start: 20040517
  2. ENFUVIRTIDE [Suspect]
     Route: 065
     Dates: start: 20040525, end: 20080814
  3. LEXIVA [Concomitant]
     Dates: start: 20040105, end: 20081007
  4. NORVIR [Concomitant]
     Dates: start: 20040105, end: 20041007
  5. NORVIR [Concomitant]
     Dates: start: 20050317, end: 20080814
  6. INVIRASE [Concomitant]
     Dates: start: 20040521, end: 20041101
  7. INVIRASE [Concomitant]
     Dosage: FREQ: QD
     Dates: start: 20041101, end: 20050217
  8. TRIZIVIR [Concomitant]
     Dates: start: 20040521, end: 20041007
  9. TRIZIVIR [Concomitant]
     Dates: start: 20050217, end: 20060824
  10. KALETRA [Concomitant]
     Dates: start: 20041007, end: 20041101
  11. EPZICOM [Concomitant]
     Dosage: FREQ: QD
     Dates: start: 20041101, end: 20050101
  12. REYATAZ [Concomitant]
     Dosage: FREQ: QD
     Dates: start: 20041101, end: 20050217
  13. ZERIT [Concomitant]
     Dosage: FREQ: QD
     Dates: start: 20041101, end: 20050217
  14. APTIVUS [Concomitant]
     Dates: start: 20050217
  15. APTIVUS [Concomitant]
     Dates: start: 20060213, end: 20060824
  16. APTIVUS [Concomitant]
     Dates: end: 20080814
  17. TRUVADA [Concomitant]
     Dosage: FREQ: QD
     Dates: start: 20060824, end: 20080814
  18. PREZISTA [Concomitant]
     Dates: start: 20060824, end: 20080814

REACTIONS (1)
  - OSTEOMYELITIS [None]
